FAERS Safety Report 8413811-2 (Version None)
Quarter: 2012Q2

REPORT INFORMATION
  Report Type: 
  Country: None (occurrence: None)
  Receive Date: 20120605
  Receipt Date: 20120525
  Transmission Date: 20120825
  Serious: Yes (Hospitalization, Other)
  Sender: FDA-Public Use
  Company Number: US-MERCK-1202USA03892

PATIENT
  Age: 71 Year
  Sex: Female

DRUGS (7)
  1. FOSAMAX [Suspect]
     Indication: OSTEOPOROSIS POSTMENOPAUSAL
     Route: 048
     Dates: start: 20030724, end: 20050801
  2. NORVASC [Concomitant]
     Indication: HYPERTENSION
     Route: 065
  3. NITRODERM [Concomitant]
     Route: 065
  4. FOSAMAX [Suspect]
     Route: 048
     Dates: start: 20080801, end: 20110501
  5. ALENDRONATE SODIUM [Suspect]
     Indication: OSTEOPOROSIS POSTMENOPAUSAL
     Route: 048
     Dates: start: 20080801, end: 20111103
  6. LIPITOR [Concomitant]
     Indication: HYPERCHOLESTEROLAEMIA
     Route: 065
  7. FOSAMAX PLUS D [Suspect]
     Indication: OSTEOPOROSIS POSTMENOPAUSAL
     Route: 048
     Dates: start: 20051101, end: 20080801

REACTIONS (20)
  - MYOCARDIAL INFARCTION [None]
  - ANAEMIA [None]
  - GAIT DISTURBANCE [None]
  - CONSTIPATION [None]
  - DEEP VEIN THROMBOSIS [None]
  - PERIARTHRITIS [None]
  - BLOOD CALCIUM DECREASED [None]
  - MUSCULOSKELETAL DISCOMFORT [None]
  - FLATULENCE [None]
  - ARTHRALGIA [None]
  - HYPOAESTHESIA [None]
  - OSTEOARTHRITIS [None]
  - INCISIONAL DRAINAGE [None]
  - ARTHRITIS [None]
  - LOW TURNOVER OSTEOPATHY [None]
  - HAEMOGLOBIN DECREASED [None]
  - FEMUR FRACTURE [None]
  - JOINT CREPITATION [None]
  - LIMB DEFORMITY [None]
  - SYNOVITIS [None]
